FAERS Safety Report 19478916 (Version 1)
Quarter: 2021Q2

REPORT INFORMATION
  Report Type: Spontaneous
  Country: JP (occurrence: JP)
  Receive Date: 20210630
  Receipt Date: 20210630
  Transmission Date: 20210717
  Serious: Yes (Hospitalization)
  Sender: FDA-Public Use
  Company Number: JP-ALLERGAN-2124165US

PATIENT
  Sex: Female

DRUGS (1)
  1. MEMANTINE HCL ? BP [Suspect]
     Active Substance: MEMANTINE
     Indication: DEMENTIA
     Dosage: 20 MG, QD

REACTIONS (6)
  - Somnolence [Recovering/Resolving]
  - Decreased activity [Recovering/Resolving]
  - Lacunar infarction [Unknown]
  - Depressed level of consciousness [Recovering/Resolving]
  - Treatment delayed [Recovering/Resolving]
  - Hypophagia [Recovering/Resolving]
